FAERS Safety Report 7010322-6 (Version None)
Quarter: 2010Q3

REPORT INFORMATION
  Report Type: 
  Country: None (occurrence: None)
  Receive Date: 20100923
  Receipt Date: 20100916
  Transmission Date: 20110219
  Serious: Yes (Other)
  Sender: FDA-Public Use
  Company Number: B0674804A

PATIENT
  Sex: Female

DRUGS (8)
  1. AUGMENTIN '125' [Suspect]
     Indication: TONSILLITIS
     Dosage: 1G THREE TIMES PER DAY
     Route: 048
     Dates: start: 20100724, end: 20100801
  2. LAMALINE [Suspect]
     Indication: TONSILLITIS
     Dosage: 1UNIT FOUR TIMES PER DAY
     Route: 048
     Dates: start: 20100724, end: 20100801
  3. ULTRA LEVURE [Suspect]
     Route: 048
     Dates: start: 20100724, end: 20100801
  4. AMBROXOL [Suspect]
     Indication: PHARYNGITIS
     Dosage: 1UNIT FIVE TIMES PER DAY
     Route: 048
     Dates: start: 20100724, end: 20100801
  5. LEVONORGESTREL + ETHINYL ESTRADIOL [Concomitant]
     Route: 065
  6. EFFERALGAN [Concomitant]
     Indication: TONSILLITIS
     Route: 065
     Dates: start: 20100722, end: 20100724
  7. IBUPROFEN [Concomitant]
     Indication: TONSILLITIS
     Route: 065
     Dates: start: 20100722, end: 20100724
  8. ELUDRIL [Concomitant]
     Route: 065

REACTIONS (5)
  - ASTHENIA [None]
  - FAECES DISCOLOURED [None]
  - LIVER INJURY [None]
  - PRURITUS GENERALISED [None]
  - VULVOVAGINAL MYCOTIC INFECTION [None]
